FAERS Safety Report 25531005 (Version 2)
Quarter: 2025Q3

REPORT INFORMATION
  Report Type: Spontaneous
  Country: EU (occurrence: EU)
  Receive Date: 20250708
  Receipt Date: 20250715
  Transmission Date: 20251020
  Serious: Yes (Hospitalization)
  Sender: TEVA
  Company Number: EU-TEVA-VS-3348780

PATIENT
  Age: 63 Year
  Sex: Male

DRUGS (3)
  1. GEMCITABINE [Suspect]
     Active Substance: GEMCITABINE
     Indication: Peripheral T-cell lymphoma unspecified
     Route: 065
  2. TOLINAPANT [Suspect]
     Active Substance: TOLINAPANT
     Indication: Peripheral T-cell lymphoma unspecified
     Dosage: TOLINAPANT [ASTX-660]-FOR TWO CYCLES
     Route: 065
  3. CISPLATIN [Suspect]
     Active Substance: CISPLATIN
     Indication: Peripheral T-cell lymphoma unspecified
     Route: 065

REACTIONS (3)
  - Drug ineffective [Unknown]
  - Lipase increased [Unknown]
  - Dysphagia [Unknown]
